FAERS Safety Report 6244406-7 (Version None)
Quarter: 2009Q2

REPORT INFORMATION
  Report Type: 
  Country: None (occurrence: None)
  Receive Date: 20090625
  Receipt Date: 20090617
  Transmission Date: 20091009
  Serious: Yes (Other)
  Sender: FDA-Public Use
  Company Number: US-JNJFOC-20090606177

PATIENT
  Sex: Male
  Weight: 73.94 kg

DRUGS (5)
  1. FENTANYL TRANSDERMAL SYSTEM [Suspect]
     Indication: MULTIPLE MYELOMA
  2. FENTANYL [Suspect]
     Indication: MULTIPLE MYELOMA
     Route: 062
  3. GLIMEPIRIDE [Concomitant]
     Indication: DIABETES MELLITUS
     Route: 048
  4. REVLIMID [Concomitant]
     Indication: MULTIPLE MYELOMA
     Route: 048
  5. DEXAMETHASONE [Concomitant]
     Indication: NEOPLASM MALIGNANT
     Dosage: 1O PILLS
     Route: 048

REACTIONS (3)
  - DRUG DEPENDENCE [None]
  - FATIGUE [None]
  - WRONG TECHNIQUE IN DRUG USAGE PROCESS [None]
